FAERS Safety Report 13273106 (Version 1)
Quarter: 2017Q1

REPORT INFORMATION
  Report Type: Spontaneous
  Country: US (occurrence: US)
  Receive Date: 20170227
  Receipt Date: 20170227
  Transmission Date: 20170428
  Serious: No
  Sender: FDA-Public Use
  Company Number: US-TEVA-723500ACC

PATIENT
  Sex: Female

DRUGS (2)
  1. DOXYCYCLINE. [Suspect]
     Active Substance: DOXYCYCLINE
     Route: 065
  2. LAMISIL [Suspect]
     Active Substance: TERBINAFINE HYDROCHLORIDE
     Route: 065

REACTIONS (4)
  - Hypersensitivity [Unknown]
  - Rash erythematous [Unknown]
  - Pain in extremity [Unknown]
  - Rash pruritic [Unknown]
